FAERS Safety Report 5287568-0 (Version None)
Quarter: 2007Q1

REPORT INFORMATION
  Report Type: 
  Country: None (occurrence: None)
  Receive Date: 20070126
  Receipt Date: 20060501
  Transmission Date: 20070707
  Serious: No
  Sender: FDA-Public Use
  Company Number: 2006CT001086

PATIENT
  Age: 43 Year
  Sex: Female
  Weight: 59 kg

DRUGS (16)
  1. VENTAVIS [Suspect]
     Indication: PULMONARY HYPERTENSION
     Dosage: SEE IMAGE
     Route: 055
     Dates: start: 20051230, end: 20051230
  2. VENTAVIS [Suspect]
     Indication: PULMONARY HYPERTENSION
     Dosage: SEE IMAGE
     Route: 055
     Dates: start: 20051230, end: 20060217
  3. PERCOCET [Concomitant]
  4. OXYCONTIN [Concomitant]
  5. VALIUM [Concomitant]
  6. MEGACE [Concomitant]
  7. RIBAVIRIN [Concomitant]
  8. PEGINTERFERON ALFA-2B [Concomitant]
  9. VIREAD [Concomitant]
  10. MOTRIN [Concomitant]
  11. ALBUTEROL [Concomitant]
  12. PANTOPRAZOLE [Concomitant]
  13. SEREVENT [Concomitant]
  14. SUSTIVA [Concomitant]
  15. COMBIVIR [Concomitant]
  16. REMERON [Concomitant]

REACTIONS (1)
  - PHARYNGOLARYNGEAL PAIN [None]
